FAERS Safety Report 4366096-0 (Version None)
Quarter: 2004Q2

REPORT INFORMATION
  Report Type: 
  Country: None (occurrence: None)
  Receive Date: 20040526
  Receipt Date: 20040526
  Transmission Date: 20050107
  Serious: No
  Sender: FDA-Public Use
  Company Number: None

PATIENT
  Sex: Female

DRUGS (4)
  1. NAMENDA [Suspect]
     Indication: DEMENTIA ALZHEIMER'S TYPE
  2. THYROID TAB [Concomitant]
  3. ZOLOFT [Concomitant]
  4. PRAVACHOL [Concomitant]

REACTIONS (1)
  - RASH [None]
